FAERS Safety Report 8157196-8 (Version None)
Quarter: 2012Q1

REPORT INFORMATION
  Report Type: 
  Country: None (occurrence: None)
  Receive Date: 20120222
  Receipt Date: 20120216
  Transmission Date: 20120608
  Serious: Yes (Other)
  Sender: FDA-Public Use
  Company Number: US-BAYER-200829288NA

PATIENT
  Sex: Male
  Weight: 84 kg

DRUGS (25)
  1. MAGNEVIST [Suspect]
     Indication: ANGIOGRAM
  2. OPTIMARK [Suspect]
     Indication: PRODUCT USED FOR UNKNOWN INDICATION
  3. HYDROCODONE [Concomitant]
  4. DYNACIRC [Concomitant]
  5. STEROID ANTIBACTERIALS [Concomitant]
  6. MYCOPHENOLATE MOFETIL (CELLCEPT) [Concomitant]
  7. NORVASC [Concomitant]
  8. ALPRAZOLAM [Concomitant]
  9. PREDNISONE [Concomitant]
  10. MAGNEVIST [Suspect]
     Indication: NUCLEAR MAGNETIC RESONANCE IMAGING
     Dosage: 40 ML
     Dates: start: 20070201, end: 20070201
  11. OMNISCAN [Suspect]
     Indication: PRODUCT USED FOR UNKNOWN INDICATION
  12. MULTIHANCE [Suspect]
     Indication: PRODUCT USED FOR UNKNOWN INDICATION
  13. BUMETANIDE [Concomitant]
  14. PROGRAF [Concomitant]
  15. PLAVIX [Concomitant]
  16. GLIPIZIDE [Concomitant]
  17. TOPROL-XL [Concomitant]
  18. PRAVACHOL [Concomitant]
  19. MAGNEVIST [Suspect]
  20. PROHANCE [Suspect]
     Indication: PRODUCT USED FOR UNKNOWN INDICATION
  21. METOPROLOL TARTRATE [Concomitant]
  22. CARISOPRODOL [Concomitant]
  23. CIPROFLOXACIN [Concomitant]
  24. SULFAMETHOXAZOLE [Concomitant]
  25. GLYBURIDE [Concomitant]

REACTIONS (9)
  - MOBILITY DECREASED [None]
  - INJURY [None]
  - PAIN [None]
  - POLLAKIURIA [None]
  - NEPHROGENIC SYSTEMIC FIBROSIS [None]
  - ANXIETY [None]
  - GENERAL PHYSICAL HEALTH DETERIORATION [None]
  - EMOTIONAL DISTRESS [None]
  - SKIN TIGHTNESS [None]
